FAERS Safety Report 5448747-2 (Version None)
Quarter: 2007Q3

REPORT INFORMATION
  Report Type: 
  Country: None (occurrence: None)
  Receive Date: 20070911
  Receipt Date: 20070907
  Transmission Date: 20080115
  Serious: Yes (Other)
  Sender: FDA-Public Use
  Company Number: B0486108A

PATIENT
  Age: 39 Year
  Sex: Female
  Weight: 67 kg

DRUGS (9)
  1. PAXIL [Suspect]
     Indication: DEPRESSION
     Dosage: 10MG THREE TIMES PER DAY
     Route: 048
     Dates: start: 20030527
  2. FERROMIA [Concomitant]
     Dosage: 50MG PER DAY
     Route: 048
     Dates: start: 20070320
  3. LENDORMIN [Concomitant]
     Indication: INSOMNIA
     Dosage: .25MG PER DAY
     Route: 048
     Dates: start: 20061120
  4. LEXOTAN [Concomitant]
     Indication: DEPRESSION
     Dosage: 2MG PER DAY
     Route: 048
     Dates: start: 20030527
  5. UNKNOWN DRUG [Concomitant]
     Route: 042
     Dates: start: 20070525, end: 20070525
  6. UTEMERIN [Concomitant]
     Dosage: 5MG FOUR TIMES PER DAY
     Route: 048
     Dates: start: 20070305, end: 20070424
  7. WARFARIN SODIUM [Concomitant]
     Route: 048
  8. ORGARAN [Concomitant]
     Route: 042
  9. PARAMIDIN [Concomitant]

REACTIONS (2)
  - DEEP VEIN THROMBOSIS [None]
  - DELIVERY [None]
